FAERS Safety Report 17455197 (Version 1)
Quarter: 2020Q1

REPORT INFORMATION
  Report Type: Spontaneous
  Country: FR (occurrence: FR)
  Receive Date: 20200225
  Receipt Date: 20200225
  Transmission Date: 20200409
  Serious: Yes (Other)
  Sender: FDA-Public Use
  Company Number: FR-ROCHE-2556057

PATIENT
  Sex: Male

DRUGS (1)
  1. MABTHERA [Suspect]
     Active Substance: RITUXIMAB
     Indication: LEWIS-SUMNER SYNDROME
     Dosage: 500 MG/50 ML 1
     Route: 042

REACTIONS (5)
  - Back pain [Unknown]
  - Pain in extremity [Unknown]
  - Intentional product use issue [Unknown]
  - Muscle atrophy [Unknown]
  - Off label use [Unknown]
